FAERS Safety Report 4279456-3 (Version None)
Quarter: 2004Q1

REPORT INFORMATION
  Report Type: 
  Country: None (occurrence: None)
  Receive Date: 20040127
  Receipt Date: 20031003
  Transmission Date: 20041129
  Serious: Yes (Death, Congenital Anomaly)
  Sender: FDA-Public Use
  Company Number: US-GLAXOSMITHKLINE-A0412091B

PATIENT
  Sex: Male
  Weight: 0.3 kg

DRUGS (5)
  1. WELLBUTRIN [Suspect]
     Indication: DEPRESSION
     Dosage: 150MG TWICE PER DAY
     Dates: start: 20020701
  2. ALCOHOL [Concomitant]
  3. FOLIC ACID [Concomitant]
  4. JUICE PLUS [Concomitant]
  5. PRENATAL VITAMINS [Concomitant]

REACTIONS (19)
  - ABDOMINAL WALL ANOMALY [None]
  - ARTERIOPATHIC DISEASE [None]
  - CHORIOAMNIONITIS [None]
  - CLEFT PALATE [None]
  - CONGENITAL ATRIAL SEPTAL DEFECT [None]
  - DRUG EXPOSURE DURING PREGNANCY [None]
  - EAR MALFORMATION [None]
  - INTRA-UTERINE DEATH [None]
  - JAW FRACTURE [None]
  - KYPHOSIS [None]
  - LIVER DISORDER [None]
  - LYMPHANGIECTASIA [None]
  - MACROGNATHIA [None]
  - NOSE DEFORMITY [None]
  - PECTUS EXCAVATUM [None]
  - PLACENTAL DISORDER [None]
  - SPLEEN MALFORMATION [None]
  - THYROID DISORDER [None]
  - TRAUMATIC DELIVERY [None]
